FAERS Safety Report 16798237 (Version 1)
Quarter: 2019Q3

REPORT INFORMATION
  Report Type: Spontaneous
  Country: ES (occurrence: ES)
  Receive Date: 20190912
  Receipt Date: 20190912
  Transmission Date: 20191005
  Serious: Yes (Other)
  Sender: FDA-Public Use
  Company Number: ES-ACCORD-154667

PATIENT
  Age: 58 Year
  Sex: Female

DRUGS (10)
  1. SUMIAL [Concomitant]
     Active Substance: PROPRANOLOL HYDROCHLORIDE
     Dosage: STRENGTH: 40 MG FILM-COATED TABLET, 50 TABLETS
     Route: 048
  2. CYMBALTA [Interacting]
     Active Substance: DULOXETINE HYDROCHLORIDE
     Indication: PRODUCT USED FOR UNKNOWN INDICATION
     Dosage: CYMBALTA 30 MG 2-1-0
     Route: 048
     Dates: start: 2011, end: 20190816
  3. DILUTOL [Concomitant]
     Dosage: STRENGTH: 10 MG TABLET, 30 TABLETS
     Route: 048
  4. DEPRAX [Concomitant]
     Dosage: STRENGTH: 100 MG FILM-COATED TABLETS EFG
     Route: 048
  5. CYMBALTA [Interacting]
     Active Substance: DULOXETINE HYDROCHLORIDE
     Indication: PRODUCT USED FOR UNKNOWN INDICATION
     Dosage: CYMBALTA 60 MG GASTRO-RESISTANT CAPSULES: 60 MG ORAL C/24H,
     Route: 048
     Dates: start: 20190816
  6. CLOPIDOGREL [Suspect]
     Active Substance: CLOPIDOGREL BISULFATE
     Indication: CEREBRAL THROMBOSIS
     Dosage: 1 EVERY 24 HOURS. 0-1-0., STRENGTH: 75 MG 28 TABLETS
     Route: 048
     Dates: start: 201306
  7. LEXATIN [Concomitant]
     Dosage: STRENGTH: 3 MG HARD CAPSULE, 30 CAPSULES
     Route: 048
  8. ELONTRIL [Interacting]
     Active Substance: BUPROPION HYDROCHLORIDE
     Indication: ADJUSTMENT DISORDER WITH DEPRESSED MOOD
     Dosage: 150 MG ORAL C/24H. (1-0-0), STRENGTH: 150 MG 30 TABLETS
     Route: 048
     Dates: start: 20190816, end: 20190817
  9. ADOLONTA RETARD [Interacting]
     Active Substance: TRAMADOL HYDROCHLORIDE
     Indication: PRODUCT USED FOR UNKNOWN INDICATION
     Dosage: 1 EVERY 12 HOURS, STRENGTH: 100 MG, 60 TABLETS
     Route: 048
     Dates: start: 2016
  10. NEXIUM MUPS [Concomitant]
     Active Substance: ESOMEPRAZOLE
     Dosage: STRENGTH: 40 MG GASTRO-RESISTANT TABLET, 28 TABLETS
     Route: 048

REACTIONS (2)
  - Seizure [Recovered/Resolved]
  - Drug interaction [Unknown]

NARRATIVE: CASE EVENT DATE: 20190817
